FAERS Safety Report 18920830 (Version 1)
Quarter: 2021Q1

REPORT INFORMATION
  Report Type: Spontaneous
  Country: GB (occurrence: GB)
  Receive Date: 20210222
  Receipt Date: 20210222
  Transmission Date: 20210420
  Serious: Yes (Other)
  Sender: FDA-Public Use
  Company Number: GB-LUPIN PHARMACEUTICALS INC.-2021-01968

PATIENT
  Age: 16 Year
  Sex: Female

DRUGS (7)
  1. PREDNISOLONE. [Concomitant]
     Active Substance: PREDNISOLONE
     Indication: ECZEMA
     Dosage: 0.5 MILLIGRAM/KILOGRAM, TWO SHORT COURSES
     Route: 048
  2. CLOBETASOL [Suspect]
     Active Substance: CLOBETASOL
     Indication: PRODUCT USED FOR UNKNOWN INDICATION
     Dosage: UNK
     Route: 061
  3. HYDROCORTISONE. [Concomitant]
     Active Substance: HYDROCORTISONE
     Indication: ECZEMA
     Dosage: UNK, SINGLE DOSE
     Route: 042
  4. CLINDAMYCIN. [Concomitant]
     Active Substance: CLINDAMYCIN
     Indication: ECZEMA
     Dosage: UNK
     Route: 048
  5. FLUCLOXACILLIN [Concomitant]
     Active Substance: FLUCLOXACILLIN
     Indication: ECZEMA
     Dosage: UNK
     Route: 048
  6. APREMILAST [Concomitant]
     Active Substance: APREMILAST
     Indication: PRODUCT USED FOR UNKNOWN INDICATION
     Dosage: 30 MILLIGRAM, BID
     Route: 065
  7. CLOBETASOL [Suspect]
     Active Substance: CLOBETASOL
     Dosage: GREATER THAN 150 G/WEEK
     Route: 061

REACTIONS (3)
  - Tinea infection [Recovered/Resolved]
  - Cushingoid [Unknown]
  - Intentional product misuse [Unknown]
